FAERS Safety Report 9931753 (Version 5)
Quarter: 2014Q2

REPORT INFORMATION
  Report Type: Spontaneous
  Country: US (occurrence: US)
  Receive Date: 20140228
  Receipt Date: 20140410
  Transmission Date: 20141212
  Serious: Yes (Other)
  Sender: FDA-Public Use
  Company Number: US-JNJFOC-20130912525

PATIENT
  Sex: Male

DRUGS (9)
  1. RISPERDAL [Suspect]
     Indication: BIPOLAR DISORDER
     Route: 048
  2. RISPERDAL [Suspect]
     Indication: OPPOSITIONAL DEFIANT DISORDER
     Route: 048
  3. RISPERDAL [Suspect]
     Indication: ATTENTION DEFICIT/HYPERACTIVITY DISORDER
     Route: 048
  4. FOCALIN [Concomitant]
     Route: 065
  5. TRAZODONE [Concomitant]
     Route: 065
  6. GEODON [Concomitant]
     Route: 065
  7. CLONIDINE [Concomitant]
     Route: 065
  8. STRATTERA [Concomitant]
     Route: 065
  9. ABILIFY [Concomitant]
     Route: 065

REACTIONS (3)
  - Gynaecomastia [Unknown]
  - Metabolic syndrome [Unknown]
  - Emotional distress [Unknown]
